FAERS Safety Report 13074026 (Version 2)
Quarter: 2017Q1

REPORT INFORMATION
  Report Type: Spontaneous
  Country: GB (occurrence: GB)
  Receive Date: 20161229
  Receipt Date: 20170201
  Transmission Date: 20170428
  Serious: Yes (Hospitalization)
  Sender: FDA-Public Use
  Company Number: GB-MYLANLABS-2016M1057466

PATIENT

DRUGS (1)
  1. CLOZARIL [Suspect]
     Active Substance: CLOZAPINE
     Indication: SCHIZOPHRENIA
     Dosage: UNK
     Route: 048
     Dates: start: 20051017

REACTIONS (3)
  - Antipsychotic drug level decreased [Unknown]
  - Drug dose omission [Unknown]
  - Malaise [Unknown]

NARRATIVE: CASE EVENT DATE: 201612
